FAERS Safety Report 10645267 (Version 29)
Quarter: 2017Q4

REPORT INFORMATION
  Report Type: Report from Study
  Country: CA (occurrence: CA)
  Receive Date: 20141211
  Receipt Date: 20171211
  Transmission Date: 20180320
  Serious: Yes (Other)
  Sender: FDA-Public Use
  Company Number: CA-ROCHE-1303094

PATIENT
  Age: 47 Year
  Sex: Female
  Weight: 57 kg

DRUGS (5)
  1. MOBICOX [Concomitant]
     Active Substance: MELOXICAM
  2. PREDNISONE. [Concomitant]
     Active Substance: PREDNISONE
  3. ACTEMRA [Suspect]
     Active Substance: TOCILIZUMAB
     Indication: RHEUMATOID ARTHRITIS
     Route: 042
     Dates: start: 20131016
  4. ACTEMRA [Suspect]
     Active Substance: TOCILIZUMAB
     Route: 042
     Dates: start: 20140318
  5. ACTEMRA [Suspect]
     Active Substance: TOCILIZUMAB
     Route: 042
     Dates: start: 20140219

REACTIONS (40)
  - Influenza [Not Recovered/Not Resolved]
  - Hypertension [Unknown]
  - Arthralgia [Unknown]
  - Uterine polyp [Recovered/Resolved]
  - Drug ineffective [Unknown]
  - Bronchitis [Not Recovered/Not Resolved]
  - Medication error [Unknown]
  - Muscle spasms [Not Recovered/Not Resolved]
  - Sinusitis [Not Recovered/Not Resolved]
  - Rhinitis [Unknown]
  - Pain in extremity [Not Recovered/Not Resolved]
  - Hypotension [Unknown]
  - Hypoaesthesia [Not Recovered/Not Resolved]
  - Hypotension [Unknown]
  - Infusion related reaction [Unknown]
  - Weight increased [Not Recovered/Not Resolved]
  - Oxygen saturation decreased [Unknown]
  - Blood pressure increased [Recovered/Resolved]
  - Fibromyalgia [Unknown]
  - Polyp [Recovered/Resolved]
  - Aphasia [Not Recovered/Not Resolved]
  - Fatigue [Unknown]
  - Fatigue [Not Recovered/Not Resolved]
  - Synovitis [Not Recovered/Not Resolved]
  - Heart rate decreased [Unknown]
  - Multiple sclerosis [Unknown]
  - Pneumonitis [Recovered/Resolved]
  - Discomfort [Unknown]
  - Nasopharyngitis [Not Recovered/Not Resolved]
  - Hernia [Unknown]
  - Catheter site discharge [Recovered/Resolved]
  - Drug ineffective [Unknown]
  - Vision blurred [Not Recovered/Not Resolved]
  - Arthralgia [Recovered/Resolved]
  - Body temperature increased [Unknown]
  - Muscular weakness [Unknown]
  - Dry skin [Not Recovered/Not Resolved]
  - Increased upper airway secretion [Unknown]
  - Weight decreased [Unknown]
  - Bursitis [Not Recovered/Not Resolved]

NARRATIVE: CASE EVENT DATE: 20131231
